FAERS Safety Report 17710698 (Version 4)
Quarter: 2022Q4

REPORT INFORMATION
  Report Type: Spontaneous
  Country: US (occurrence: US)
  Receive Date: 20200427
  Receipt Date: 20221020
  Transmission Date: 20230113
  Serious: Yes (Other)
  Sender: FDA-Public Use
  Company Number: US-PFIZER INC-2020160845

PATIENT
  Age: 77 Year
  Sex: Female

DRUGS (1)
  1. XELJANZ [Suspect]
     Active Substance: TOFACITINIB CITRATE
     Dosage: 5 MG
     Route: 048

REACTIONS (14)
  - Immobile [Unknown]
  - Kidney infection [Unknown]
  - Product dose omission issue [Unknown]
  - Herpes zoster [Unknown]
  - Pain [Unknown]
  - Gait disturbance [Unknown]
  - Arthritis [Unknown]
  - Illness [Unknown]
  - Urinary tract infection [Unknown]
  - Staphylococcal infection [Unknown]
  - Upper respiratory tract infection [Unknown]
  - Bronchitis [Unknown]
  - Bacterial test positive [Unknown]
  - Scoliosis [Unknown]

NARRATIVE: CASE EVENT DATE: 20200101
